FAERS Safety Report 21760846 (Version 1)
Quarter: 2022Q4

REPORT INFORMATION
  Report Type: Spontaneous
  Country: US (occurrence: None)
  Receive Date: 20221220
  Receipt Date: 20221220
  Transmission Date: 20230112
  Serious: Yes (Death)
  Sender: FDA-Public Use
  Company Number: None

PATIENT
  Age: 81 Year
  Sex: Male

DRUGS (4)
  1. PREDNISONE [Suspect]
     Active Substance: PREDNISONE
     Indication: Idiopathic pulmonary fibrosis
     Dosage: 534MG TID ORAL?
     Route: 048
     Dates: start: 202206, end: 202212
  2. ROSUVASTATIN [Concomitant]
     Active Substance: ROSUVASTATIN
  3. GABAPENTIN [Concomitant]
     Active Substance: GABAPENTIN
  4. SYMBICORT [Concomitant]
     Active Substance: BUDESONIDE\FORMOTEROL FUMARATE DIHYDRATE

REACTIONS (1)
  - Death [None]

NARRATIVE: CASE EVENT DATE: 20221218
